FAERS Safety Report 23141838 (Version 1)
Quarter: 2023Q4

REPORT INFORMATION
  Report Type: Spontaneous
  Country: US (occurrence: US)
  Receive Date: 20231103
  Receipt Date: 20231103
  Transmission Date: 20240109
  Serious: No
  Sender: FDA-Public Use
  Company Number: US-MYOVANT SCIENCES GMBH-2023MYSCI0900947

PATIENT
  Age: 70 Year
  Sex: Male

DRUGS (5)
  1. ORGOVYX [Suspect]
     Active Substance: RELUGOLIX
     Indication: Prostate cancer
     Dosage: UNK MILLIGRAM, ONE TIME DOSE
     Route: 048
     Dates: start: 20230828, end: 20230828
  2. ORGOVYX [Suspect]
     Active Substance: RELUGOLIX
     Dosage: 120 MILLIGRAM, QD
     Route: 048
     Dates: start: 20230829, end: 20230924
  3. TAMSULOSIN [Concomitant]
     Active Substance: TAMSULOSIN
     Indication: Diuretic therapy
     Dosage: 0.4 MILLIGRAM, QD
     Route: 065
     Dates: start: 202307
  4. FINASTERIDE [Concomitant]
     Active Substance: FINASTERIDE
     Indication: Micturition disorder
     Dosage: 20 MILLIGRAM, QD
     Route: 065
     Dates: start: 202305
  5. FUROSEMIDE [Concomitant]
     Active Substance: FUROSEMIDE
     Indication: Micturition disorder
     Dosage: 20 MILLIGRAM
     Route: 065
     Dates: start: 202306

REACTIONS (1)
  - Therapy interrupted [Unknown]

NARRATIVE: CASE EVENT DATE: 20230925
